FAERS Safety Report 12190156 (Version 1)
Quarter: 2016Q1

REPORT INFORMATION
  Report Type: Spontaneous
  Country: IT (occurrence: IT)
  Receive Date: 20160318
  Receipt Date: 20160318
  Transmission Date: 20160526
  Serious: Yes (Other)
  Sender: FDA-Public Use
  Company Number: IT-SUN PHARMACEUTICAL INDUSTRIES LTD-2016RR-113389

PATIENT

DRUGS (2)
  1. OXALIPLATINO SUN 5 MG/ML, CONCENTRATO PER SOLUZIONE PER INFUSIONE [Suspect]
     Active Substance: OXALIPLATIN
     Indication: COLON CANCER
     Dosage: 220 MG CYCLICAL
     Route: 042
     Dates: start: 20160119, end: 20160301
  2. XELODA [Suspect]
     Active Substance: CAPECITABINE
     Indication: COLON CANCER
     Dosage: 3300 MG CYCLICAL
     Route: 048
     Dates: start: 20160119, end: 20160301

REACTIONS (3)
  - Nausea [Recovered/Resolved]
  - Vertigo [Recovered/Resolved]
  - Joint stiffness [Recovered/Resolved]
